FAERS Safety Report 11714500 (Version 5)
Quarter: 2016Q1

REPORT INFORMATION
  Report Type: Spontaneous
  Country: JP (occurrence: JP)
  Receive Date: 20151109
  Receipt Date: 20160122
  Transmission Date: 20160525
  Serious: Yes (Life-Threatening, Hospitalization, Other)
  Sender: FDA-Public Use
  Company Number: JP-PFIZER INC-2015378869

PATIENT
  Age: 29 Year
  Sex: Female

DRUGS (7)
  1. JZOLOFT [Suspect]
     Active Substance: SERTRALINE HYDROCHLORIDE
     Indication: PANIC DISORDER
  2. SOLANAX [Suspect]
     Active Substance: ALPRAZOLAM
     Indication: DEPRESSION
     Dosage: 0.8 MG, DAILY
     Route: 048
     Dates: end: 2015
  3. BENZALIN [Concomitant]
     Active Substance: NITRAZEPAM
     Dosage: UNK
     Route: 048
  4. JZOLOFT [Suspect]
     Active Substance: SERTRALINE HYDROCHLORIDE
     Indication: DEPRESSION
     Dosage: 25 MG, 2X/DAY
     Route: 048
     Dates: start: 20151028, end: 20151029
  5. SOLANAX [Suspect]
     Active Substance: ALPRAZOLAM
     Indication: PANIC DISORDER
     Dosage: 1.2 MG, DAILY
     Route: 048
     Dates: start: 2015
  6. NAUZELIN [Concomitant]
     Active Substance: DOMPERIDONE
     Dosage: UNK
  7. CONTOMIN [Concomitant]
     Active Substance: CHLORPROMAZINE
     Dosage: UNK

REACTIONS (7)
  - Suicide attempt [Recovered/Resolved]
  - Delirium [Recovered/Resolved]
  - Activation syndrome [Unknown]
  - Nausea [Unknown]
  - Diarrhoea [Unknown]
  - Tachycardia [Recovered/Resolved]
  - Palpitations [Unknown]

NARRATIVE: CASE EVENT DATE: 20151030
